FAERS Safety Report 5859816-7 (Version None)
Quarter: 2008Q3

REPORT INFORMATION
  Report Type: 
  Country: None (occurrence: None)
  Receive Date: 20080827
  Receipt Date: 20080818
  Transmission Date: 20090109
  Serious: Yes (Life-Threatening)
  Sender: FDA-Public Use
  Company Number: US-MERCK-0808USA03467

PATIENT
  Age: 74 Year
  Sex: Male
  Weight: 84 kg

DRUGS (3)
  1. TIMOPTIC [Suspect]
     Indication: EYE INJURY
     Route: 047
     Dates: start: 20080101, end: 20080101
  2. XALATAN [Suspect]
     Indication: GLAUCOMA
     Route: 047
  3. TOPROL-XL [Concomitant]
     Route: 065

REACTIONS (5)
  - ADVERSE EVENT [None]
  - CARDIAC DISORDER [None]
  - CARDIAC FAILURE CONGESTIVE [None]
  - CHEST PAIN [None]
  - FATIGUE [None]
